FAERS Safety Report 18485090 (Version 2)
Quarter: 2021Q1

REPORT INFORMATION
  Report Type: Spontaneous
  Country: TR (occurrence: TR)
  Receive Date: 20201110
  Receipt Date: 20210105
  Transmission Date: 20210419
  Serious: Yes (Hospitalization, Other)
  Sender: FDA-Public Use
  Company Number: TR-MACLEODS PHARMACEUTICALS US LTD-MAC2020028977

PATIENT

DRUGS (5)
  1. EMTRICITABINE [Suspect]
     Active Substance: EMTRICITABINE
     Indication: HIV INFECTION
     Dosage: 200 INTERNATIONAL UNIT
     Route: 065
  2. COBICISTAT [Suspect]
     Active Substance: COBICISTAT
     Indication: HIV INFECTION
     Dosage: 150 INTERNATIONAL UNIT
     Route: 065
  3. TENOFOVIR [Suspect]
     Active Substance: TENOFOVIR
     Indication: HIV INFECTION
     Dosage: 300 INTERNATIONAL UNIT
     Route: 065
  4. ELVITEGRAVIR [Suspect]
     Active Substance: ELVITEGRAVIR
     Indication: HIV INFECTION
     Dosage: 150 INTERNATIONAL UNIT
     Route: 065
  5. IBANDRONATE [Concomitant]
     Active Substance: IBANDRONATE SODIUM
     Indication: OSTEOPOROSIS PROPHYLAXIS
     Dosage: UNK FOR 16 MONTHS
     Route: 065
     Dates: start: 201603

REACTIONS (7)
  - Bone marrow oedema [Recovered/Resolved]
  - Femoral neck fracture [Recovered/Resolved]
  - Radiculopathy [Recovered/Resolved]
  - Hypophosphataemia [Recovered/Resolved]
  - Hyperphosphaturia [Recovered/Resolved]
  - Atypical fracture [Recovered/Resolved]
  - Osteonecrosis [Recovered/Resolved]
